FAERS Safety Report 9918254 (Version 4)
Quarter: 2014Q4

REPORT INFORMATION
  Report Type: Spontaneous
  Country: JP (occurrence: JP)
  Receive Date: 20140224
  Receipt Date: 20141224
  Transmission Date: 20150529
  Serious: Yes (Death, Other)
  Sender: FDA-Public Use
  Company Number: JP-ROCHE-1352622

PATIENT
  Age: 70 Year
  Sex: Male

DRUGS (9)
  1. GOLIMUMAB [Suspect]
     Active Substance: GOLIMUMAB
     Indication: RHEUMATOID ARTHRITIS
     Dosage: LAST DOSE PRIOR TO SERIOUS ADVERSE EVENT: 12/JUL/2013
     Route: 058
     Dates: start: 20120731
  2. PREDNISOLONE. [Concomitant]
     Active Substance: PREDNISOLONE
     Route: 065
     Dates: start: 201103
  3. TACROLIMUS HYDRATE [Suspect]
     Active Substance: TACROLIMUS
     Indication: RHEUMATOID ARTHRITIS
     Dosage: LAST DOSE PRIOR TO SERIOUS ADVERSE EVENT:13/AUG/2013
     Route: 065
     Dates: start: 20130318
  4. AZATHIOPRINE. [Suspect]
     Active Substance: AZATHIOPRINE
     Indication: RHEUMATOID ARTHRITIS
     Dosage: LAST DOSE: 10/SEP/2013
     Route: 048
     Dates: start: 20120628
  5. METHYLPREDNISOLONE SODIUM SUCCINATE. [Suspect]
     Active Substance: METHYLPREDNISOLONE SODIUM SUCCINATE
     Route: 065
  6. METHYLPREDNISOLONE SODIUM SUCCINATE. [Suspect]
     Active Substance: METHYLPREDNISOLONE SODIUM SUCCINATE
     Indication: DIABETES MELLITUS
     Dosage: DOSAGE IS UNCERTAIN.
     Route: 065
  7. ACTEMRA [Suspect]
     Active Substance: TOCILIZUMAB
     Indication: RHEUMATOID ARTHRITIS
     Dosage: LAST DOSE PRIOR TO SERIOUS ADVERSE EVENT: 27/AUG/2013
     Route: 058
     Dates: start: 20130813
  8. METHYLPREDNISOLONE SODIUM SUCCINATE. [Suspect]
     Active Substance: METHYLPREDNISOLONE SODIUM SUCCINATE
     Route: 065
  9. GLIMEPIRIDE. [Suspect]
     Active Substance: GLIMEPIRIDE
     Indication: DIABETES MELLITUS
     Dosage: DOSAGE IS UNCERTAIN.
     Route: 048

REACTIONS (9)
  - Hepatic failure [Fatal]
  - Renal disorder [Recovered/Resolved]
  - Peripheral swelling [Unknown]
  - Altered state of consciousness [Recovered/Resolved]
  - Pain in extremity [Unknown]
  - Cardiac arrest [Fatal]
  - Hepatitis B [Fatal]
  - Hypoglycaemia [Recovered/Resolved]
  - Bacterial infection [Fatal]

NARRATIVE: CASE EVENT DATE: 20130910
